FAERS Safety Report 15469677 (Version 2)
Quarter: 2018Q4

REPORT INFORMATION
  Report Type: Spontaneous
  Country: FR (occurrence: FR)
  Receive Date: 20181005
  Receipt Date: 20181119
  Transmission Date: 20190205
  Serious: Yes (Death, Other)
  Sender: FDA-Public Use
  Company Number: FR-OTSUKA-2018_032647

PATIENT
  Sex: Female

DRUGS (2)
  1. PROZAC [Suspect]
     Active Substance: FLUOXETINE HYDROCHLORIDE
     Indication: BIPOLAR DISORDER
     Dosage: UNK
     Route: 064
  2. ABILIFY [Suspect]
     Active Substance: ARIPIPRAZOLE
     Indication: BIPOLAR DISORDER
     Dosage: UNK
     Route: 064

REACTIONS (5)
  - External auditory canal atresia [Fatal]
  - Cleft lip and palate [Fatal]
  - Sirenomelia [Fatal]
  - Limb hypoplasia congenital [Fatal]
  - Adactyly [Fatal]

NARRATIVE: CASE EVENT DATE: 2017
